FAERS Safety Report 4704759-5 (Version None)
Quarter: 2005Q2

REPORT INFORMATION
  Report Type: 
  Country: None (occurrence: None)
  Receive Date: 20050630
  Receipt Date: 20050620
  Transmission Date: 20051028
  Serious: Yes (Other)
  Sender: FDA-Public Use
  Company Number: 215499

PATIENT
  Age: 80 Year
  Sex: Female

DRUGS (4)
  1. AVASTIN [Suspect]
     Indication: COLORECTAL CANCER METASTATIC
     Dosage: 10 MG/KG
  2. FLUOROURACIL [Concomitant]
  3. LEUCOVORIN CALCIUM [Concomitant]
  4. CPT-11 (IRINOTECAN HYDROCHLORIDE) [Concomitant]

REACTIONS (2)
  - COLORECTAL CANCER METASTATIC [None]
  - MALIGNANT NEOPLASM PROGRESSION [None]
